FAERS Safety Report 4623949-3 (Version None)
Quarter: 2005Q1

REPORT INFORMATION
  Report Type: 
  Country: None (occurrence: None)
  Receive Date: 20050331
  Receipt Date: 20050323
  Transmission Date: 20050727
  Serious: Yes (Life-Threatening)
  Sender: FDA-Public Use
  Company Number: IT-ROCHE-399393

PATIENT
  Age: 44 Year
  Sex: Female

DRUGS (2)
  1. PEGASYS [Suspect]
     Dosage: FORM REPORTED AS VIAL.
     Route: 058
     Dates: start: 20040228, end: 20040728
  2. REBETOL [Concomitant]
     Dosage: ROUTE REPORTED AS OS.
     Route: 048
     Dates: start: 20040228, end: 20040728

REACTIONS (1)
  - BRAIN ABSCESS [None]
